FAERS Safety Report 19845798 (Version 1)
Quarter: 2021Q3

REPORT INFORMATION
  Report Type: Spontaneous
  Country: AE (occurrence: AE)
  Receive Date: 20210917
  Receipt Date: 20210917
  Transmission Date: 20211014
  Serious: No
  Sender: FDA-Public Use
  Company Number: AE-GLAXOSMITHKLINE-AE2021EME193611

PATIENT

DRUGS (2)
  1. OXYGEN SUPPORT [Concomitant]
     Indication: COVID-19
     Dosage: 5 L/M OR LESS
  2. SOTROVIMAB FOR COVID?19 BY INTERIM ORDER/EMERGENCY USE AUTHORIZATION [Suspect]
     Active Substance: SOTROVIMAB
     Indication: COVID-19
     Dosage: UNK

REACTIONS (3)
  - Drug effective for unapproved indication [Unknown]
  - Product use issue [Unknown]
  - Product prescribing issue [Unknown]
